FAERS Safety Report 24225366 (Version 1)
Quarter: 2024Q3

REPORT INFORMATION
  Report Type: Spontaneous
  Country: DE (occurrence: DE)
  Receive Date: 20240820
  Receipt Date: 20240820
  Transmission Date: 20241017
  Serious: Yes (Other)
  Sender: DR REDDYS
  Company Number: DE-GERMAN-LIT/DEU/24/0011826

PATIENT

DRUGS (1)
  1. CYCLOPHOSPHAMIDE [Suspect]
     Active Substance: CYCLOPHOSPHAMIDE
     Indication: Product used for unknown indication

REACTIONS (3)
  - Renal impairment [Recovered/Resolved]
  - Pericardial effusion [Recovered/Resolved]
  - Product use issue [Unknown]
